FAERS Safety Report 8590501-7 (Version None)
Quarter: 2012Q3

REPORT INFORMATION
  Report Type: 
  Country: None (occurrence: None)
  Receive Date: 20120813
  Receipt Date: 20120807
  Transmission Date: 20120928
  Serious: Yes (Other)
  Sender: FDA-Public Use
  Company Number: PHHY2012BR069617

PATIENT
  Sex: Male
  Weight: 75 kg

DRUGS (11)
  1. CLONAZEPAM [Concomitant]
     Indication: SLEEP DISORDER
     Dosage: 1 DF, QD
  2. CLOPIDOGREL BISULFATE [Concomitant]
     Dosage: 1 TABLET, DAILY
     Route: 048
  3. INSULIN [Concomitant]
     Dosage: UNK UKN, UNK
  4. SOMALGIN CARDIO [Concomitant]
     Indication: ANTICOAGULANT THERAPY
     Dosage: 1 TABLET, DAILY
     Route: 048
  5. LEVOTHYROXINE SODIUM [Concomitant]
     Indication: THYROID DISORDER
     Dosage: 1 DF, DAILY
  6. SIMVASTATIN [Concomitant]
     Indication: BLOOD CHOLESTEROL INCREASED
  7. AMIODARONE HYDROCHLORIDE [Concomitant]
     Indication: CARDIAC DISORDER
     Dosage: 1 TABLET, DAILY
  8. METFORMIN HYDROCHLORIDE [Concomitant]
     Indication: DIABETES MELLITUS
     Dosage: 1 TABLET, BID
     Route: 048
  9. DIOVAN [Suspect]
     Indication: HYPERTENSION
     Dosage: 1 TABLET, DAILY
     Route: 048
     Dates: start: 20120701
  10. HUMALOG [Concomitant]
     Indication: DIABETES MELLITUS
     Dosage: 1 DF, TID
     Route: 058
  11. ISOSORBIDE MONONITRATE [Concomitant]
     Dosage: 1 DF, TID
     Route: 048

REACTIONS (1)
  - BLOOD GLUCOSE INCREASED [None]
